FAERS Safety Report 5964062-2 (Version None)
Quarter: 2008Q4

REPORT INFORMATION
  Report Type: 
  Country: None (occurrence: None)
  Receive Date: 20081119
  Receipt Date: 20080919
  Transmission Date: 20090506
  Serious: No
  Sender: FDA-Public Use
  Company Number: WAES 0809USA03476

PATIENT
  Age: 61 Year
  Sex: Female

DRUGS (3)
  1. JANUVIA [Suspect]
     Indication: TYPE 1 DIABETES MELLITUS
     Dosage: 100 MG/DAILY/PO
     Route: 048
     Dates: start: 20080801
  2. [THERAPY UNSPECIFIED] [Concomitant]
  3. INSULIN [Concomitant]

REACTIONS (7)
  - CONSTIPATION [None]
  - DYSPNOEA [None]
  - FATIGUE [None]
  - LIP SWELLING [None]
  - OFF LABEL USE [None]
  - OROPHARYNGEAL PAIN [None]
  - SWOLLEN TONGUE [None]
